FAERS Safety Report 4644209-0 (Version None)
Quarter: 2005Q2

REPORT INFORMATION
  Report Type: 
  Country: None (occurrence: None)
  Receive Date: 20050331
  Receipt Date: 20050106
  Transmission Date: 20051028
  Serious: No
  Sender: FDA-Public Use
  Company Number: 05P-163-0285608-00

PATIENT
  Age: 47 Year
  Sex: Male
  Weight: 78.4723 kg

DRUGS (14)
  1. HUMIRA [Suspect]
     Indication: RHEUMATOID ARTHRITIS
     Dosage: 40 MG, 1 IN 2 WK, SUBCUTANEOUS;  40 MG, 1 IN 1 WK, SUBCUTANEOUS
     Route: 058
     Dates: start: 20030101, end: 20040801
  2. HUMIRA [Suspect]
     Indication: RHEUMATOID ARTHRITIS
     Dosage: 40 MG, 1 IN 2 WK, SUBCUTANEOUS;  40 MG, 1 IN 1 WK, SUBCUTANEOUS
     Route: 058
     Dates: start: 20040801
  3. METHOTREXATE [Concomitant]
  4. PREDNISONE [Concomitant]
  5. CLOPIDOGREL BISULFATE [Concomitant]
  6. LEVOTHYROXINE SODIUM [Concomitant]
  7. CARVEDILOL [Concomitant]
  8. LANSOPRAZOLE [Concomitant]
  9. ZOLPIDEM TARTRATE [Concomitant]
  10. ATORVASTATIN CALCIUM [Concomitant]
  11. HYDRALAZINE [Concomitant]
  12. ISOSORBIDE MONONITRATE [Concomitant]
  13. EPOETIN ALFA [Concomitant]
  14. NEPHROCAPS [Concomitant]

REACTIONS (1)
  - IMPAIRED HEALING [None]
